FAERS Safety Report 9600601 (Version 1)
Quarter: 2013Q4

REPORT INFORMATION
  Report Type: Spontaneous
  Country: US (occurrence: US)
  Receive Date: 20131004
  Receipt Date: 20131004
  Transmission Date: 20140711
  Serious: No
  Sender: FDA-Public Use
  Company Number: US-AMGEN-USASP2013035851

PATIENT
  Age: 24 Year
  Sex: Female
  Weight: 77.1 kg

DRUGS (5)
  1. ENBREL [Suspect]
     Indication: PRODUCT USED FOR UNKNOWN INDICATION
     Dosage: 50 MG, QWK
     Route: 058
  2. PREDNISONE [Concomitant]
     Dosage: 10 MG, UNK
  3. HYDROXYZINE HCL [Concomitant]
     Dosage: 25 MG, UNK
  4. VELIVET [Concomitant]
     Dosage: UNK
  5. SUBOXONE [Concomitant]
     Dosage: UNK,4-1 MG

REACTIONS (2)
  - Local swelling [Unknown]
  - Musculoskeletal stiffness [Unknown]
